FAERS Safety Report 18496263 (Version 4)
Quarter: 2021Q3

REPORT INFORMATION
  Report Type: Other
  Country: GB (occurrence: GB)
  Receive Date: 20201112
  Receipt Date: 20210821
  Transmission Date: 20211014
  Serious: Yes (Other)
  Sender: FDA-Public Use
  Company Number: GB-ROCHE-2708919

PATIENT
  Age: 75 Year
  Sex: Female

DRUGS (1)
  1. ROACTEMRA [Suspect]
     Active Substance: TOCILIZUMAB
     Indication: RHEUMATOID ARTHRITIS
     Route: 058
     Dates: start: 20200611

REACTIONS (10)
  - Sepsis [Unknown]
  - Ill-defined disorder [Unknown]
  - Foot fracture [Unknown]
  - Spinal fracture [Unknown]
  - Back pain [Unknown]
  - Pain in extremity [Unknown]
  - Malaise [Unknown]
  - Back disorder [Unknown]
  - Pain [Unknown]
  - Liver disorder [Unknown]
